FAERS Safety Report 6789033-8 (Version None)
Quarter: 2010Q2

REPORT INFORMATION
  Report Type: 
  Country: None (occurrence: None)
  Receive Date: 20100623
  Receipt Date: 20080718
  Transmission Date: 20101027
  Serious: Yes (Other)
  Sender: FDA-Public Use
  Company Number: US-PFIZER INC-2008052643

PATIENT
  Sex: Female

DRUGS (5)
  1. DIFLUCAN [Suspect]
     Indication: CANDIDIASIS
  2. CLARINEX-D [Concomitant]
  3. NASACORT AQ [Concomitant]
  4. LYSINE [Concomitant]
  5. VALTREX [Concomitant]

REACTIONS (1)
  - STEVENS-JOHNSON SYNDROME [None]
